FAERS Safety Report 7477497-6 (Version None)
Quarter: 2011Q2

REPORT INFORMATION
  Report Type: 
  Country: None (occurrence: None)
  Receive Date: 20110513
  Receipt Date: 20091215
  Transmission Date: 20111010
  Serious: No
  Sender: FDA-Public Use
  Company Number: 2009BI041198

PATIENT
  Sex: Female

DRUGS (1)
  1. TYSABRI [Suspect]
     Indication: MULTIPLE SCLEROSIS
     Route: 042
     Dates: start: 20070329

REACTIONS (11)
  - DIABETES MELLITUS [None]
  - ASTHENIA [None]
  - BLOOD GLUCOSE FLUCTUATION [None]
  - COGNITIVE DISORDER [None]
  - GAIT DISTURBANCE [None]
  - CLUMSINESS [None]
  - ARTHROPATHY [None]
  - HEADACHE [None]
  - FATIGUE [None]
  - RED BLOOD CELL COUNT DECREASED [None]
  - HAEMATOCHEZIA [None]
